FAERS Safety Report 4379734-3 (Version None)
Quarter: 2004Q2

REPORT INFORMATION
  Report Type: 
  Country: None (occurrence: None)
  Receive Date: 20040617
  Receipt Date: 20040409
  Transmission Date: 20050107
  Serious: Yes (Hospitalization)
  Sender: FDA-Public Use
  Company Number: FR-GLAXOSMITHKLINE-B0329537A

PATIENT
  Age: 65 Year
  Sex: Female

DRUGS (6)
  1. AUGMENTIN '125' [Suspect]
     Dosage: 3G PER DAY
     Route: 048
     Dates: start: 20040307, end: 20040309
  2. PREVISCAN [Suspect]
     Route: 048
     Dates: start: 19990101, end: 20040309
  3. MUCOMYST [Concomitant]
     Dosage: 200MG THREE TIMES PER DAY
     Route: 048
     Dates: start: 20040307
  4. STABLON [Concomitant]
     Dosage: 1TAB TWICE PER DAY
     Route: 048
     Dates: start: 20020101
  5. FLECAINE [Concomitant]
     Dosage: 1TAB PER DAY
     Route: 048
     Dates: start: 19990101
  6. FOSAMAX [Concomitant]
     Indication: OSTEOPOROSIS
     Dosage: 70MG WEEKLY
     Route: 048
     Dates: start: 20030101

REACTIONS (5)
  - ACTIVATED PARTIAL THROMBOPLASTIN TIME PROLONGED [None]
  - BLOOD FIBRINOGEN INCREASED [None]
  - HAEMOPTYSIS [None]
  - PROTHROMBIN LEVEL DECREASED [None]
  - RESPIRATORY FAILURE [None]
